FAERS Safety Report 4744575-1 (Version None)
Quarter: 2005Q3

REPORT INFORMATION
  Report Type: 
  Country: None (occurrence: None)
  Receive Date: 20050812
  Receipt Date: 20041125
  Transmission Date: 20060218
  Serious: Yes (Hospitalization)
  Sender: FDA-Public Use
  Company Number: JP-ABBOTT-04P-087-0281983-01

PATIENT
  Age: 67 Year
  Sex: Female

DRUGS (17)
  1. HUMIRA [Suspect]
     Indication: RHEUMATOID ARTHRITIS
     Dosage: 80 MG
     Route: 058
     Dates: start: 20040816, end: 20040927
  2. BUCILLAMINE [Concomitant]
     Indication: RHEUMATOID ARTHRITIS
     Route: 048
     Dates: start: 20040305, end: 20040715
  3. BUCILLAMINE [Concomitant]
     Route: 048
     Dates: start: 20041012, end: 20041210
  4. PREDNISOLONE [Concomitant]
     Indication: RHEUMATOID ARTHRITIS
     Route: 048
     Dates: start: 20040501, end: 20040512
  5. PREDNISOLONE [Concomitant]
     Route: 048
     Dates: start: 20040513, end: 20041031
  6. PREDNISOLONE [Concomitant]
     Route: 048
     Dates: start: 20040415, end: 20040430
  7. PREDNISOLONE [Concomitant]
     Route: 048
     Dates: start: 20041101, end: 20041205
  8. PREDNISOLONE [Concomitant]
     Route: 048
     Dates: start: 20041206, end: 20050105
  9. PREDNISOLONE [Concomitant]
     Route: 048
     Dates: start: 20050109
  10. MUCOSOLVAN L [Concomitant]
     Indication: BRONCHITIS
     Route: 048
     Dates: start: 20040721
  11. GASTER D [Concomitant]
     Indication: GASTRITIS
     Route: 048
     Dates: start: 20040802, end: 20041214
  12. GASTER D [Concomitant]
     Route: 048
     Dates: start: 20041215, end: 20041220
  13. GASTER D [Concomitant]
     Route: 048
     Dates: start: 20041221, end: 20050111
  14. LOXOPROFEN SODIUM [Concomitant]
     Indication: RHEUMATOID ARTHRITIS
     Route: 048
  15. PHENYTOIN [Concomitant]
     Indication: EPILEPSY
     Route: 048
  16. MAGNESIUM OXIDE [Concomitant]
     Indication: CONSTIPATION
     Route: 048
  17. CALCITRIOL [Concomitant]
     Indication: OSTEOPOROSIS
     Route: 048
     Dates: start: 20041013

REACTIONS (2)
  - CRYPTOGENIC ORGANIZING PNEUMONIA [None]
  - PNEUMONIA [None]
